FAERS Safety Report 6212362-3 (Version None)
Quarter: 2009Q2

REPORT INFORMATION
  Report Type: 
  Country: None (occurrence: None)
  Receive Date: 20090529
  Receipt Date: 20090518
  Transmission Date: 20091009
  Serious: Yes (Life-Threatening, Hospitalization, Other)
  Sender: FDA-Public Use
  Company Number: 2009AL003512

PATIENT
  Age: 60 Year
  Sex: Female

DRUGS (22)
  1. RAMIPRIL [Suspect]
     Indication: HYPERTENSION
     Dosage: 2.5 MG;PO
     Route: 048
     Dates: start: 20090423, end: 20090430
  2. LORATADINE [Concomitant]
  3. KLIOFEM [Concomitant]
  4. BECLOMETASONE [Concomitant]
  5. DICLOFENAC SODIUM [Concomitant]
  6. BENDROFLUMETHIAZIDE [Concomitant]
  7. THIAMINE HCL [Concomitant]
  8. VITAMIN B SUBSTANCES [Concomitant]
  9. ACETYLSALICYLIC ACID SRT [Concomitant]
  10. GABAPENTIN [Concomitant]
  11. GASTROCOTE [Concomitant]
  12. OMEPRAZOLE [Concomitant]
  13. PARACETAMOL [Concomitant]
  14. PEPPERMINT OIL [Concomitant]
  15. ALBUTEROL [Concomitant]
  16. CODEINE SUL TAB [Concomitant]
  17. KYPROMELLOSE [Concomitant]
  18. AQUEOUS CREAM [Concomitant]
  19. DAKTACORT [Concomitant]
  20. CETIRIZINE [Concomitant]
  21. AMOXICILLIN [Concomitant]
  22. FLOXACILLIN SODIUM [Concomitant]

REACTIONS (2)
  - ANGIOEDEMA [None]
  - NO THERAPEUTIC RESPONSE [None]
